FAERS Safety Report 6596762-8 (Version None)
Quarter: 2010Q1

REPORT INFORMATION
  Report Type: 
  Country: None (occurrence: None)
  Receive Date: 20100212
  Receipt Date: 20100128
  Transmission Date: 20100710
  Serious: Yes (Other)
  Sender: FDA-Public Use
  Company Number: 005817

PATIENT
  Sex: Female

DRUGS (2)
  1. KEPPRA [Suspect]
     Dosage: 500 MG QD
  2. LACOSAMIDE [Suspect]
     Indication: CONVULSION
     Dosage: 250 MG QD ORAL
     Route: 048

REACTIONS (2)
  - DRUG INEFFECTIVE [None]
  - PARALYSIS [None]
